FAERS Safety Report 17949133 (Version 1)
Quarter: 2020Q2

REPORT INFORMATION
  Report Type: Spontaneous
  Country: US (occurrence: US)
  Receive Date: 20200625
  Receipt Date: 20200625
  Transmission Date: 20200714
  Serious: No
  Sender: FDA-Public Use
  Company Number: US-ROCHE-2567154

PATIENT
  Sex: Male
  Weight: 97.61 kg

DRUGS (1)
  1. KLONOPIN [Suspect]
     Active Substance: CLONAZEPAM
     Indication: INSOMNIA
     Dosage: ONGOING: NO
     Route: 048
     Dates: start: 2016, end: 20200304

REACTIONS (3)
  - Off label use [Unknown]
  - Blood cholesterol increased [Not Recovered/Not Resolved]
  - Intentional product use issue [Unknown]

NARRATIVE: CASE EVENT DATE: 2016
